FAERS Safety Report 14204407 (Version 2)
Quarter: 2017Q4

REPORT INFORMATION
  Report Type: Spontaneous
  Country: US (occurrence: US)
  Receive Date: 20171120
  Receipt Date: 20171229
  Transmission Date: 20180321
  Serious: No
  Sender: FDA-Public Use
  Company Number: US-SUNOVION-2017SUN004811

PATIENT
  Sex: Female
  Weight: 158.73 kg

DRUGS (6)
  1. LATUDA [Suspect]
     Active Substance: LURASIDONE HYDROCHLORIDE
     Indication: BIPOLAR II DISORDER
     Dosage: 70 MG, UNK (60MG TABLET AND SPLITTING A 20MG TABLET IN HALF)
     Route: 048
  2. ABILIFY [Concomitant]
     Active Substance: ARIPIPRAZOLE
     Dosage: 10 UNK, UNK
     Dates: end: 201602
  3. LATUDA [Suspect]
     Active Substance: LURASIDONE HYDROCHLORIDE
     Dosage: 20 MG, UNK
     Dates: start: 20151120
  4. LATUDA [Suspect]
     Active Substance: LURASIDONE HYDROCHLORIDE
     Indication: SCHIZOPHRENIA
     Dosage: 80 MG, UNK
     Route: 048
  5. ABILIFY [Concomitant]
     Active Substance: ARIPIPRAZOLE
     Dosage: 5 UNK, UNK
  6. LATUDA [Suspect]
     Active Substance: LURASIDONE HYDROCHLORIDE
     Indication: DEPRESSION
     Dosage: 60 MG, UNK
     Route: 048

REACTIONS (4)
  - Drooling [Recovering/Resolving]
  - Crying [Recovered/Resolved]
  - Musculoskeletal stiffness [Recovering/Resolving]
  - Off label use [Unknown]

NARRATIVE: CASE EVENT DATE: 2016
